FAERS Safety Report 24817984 (Version 5)
Quarter: 2025Q2

REPORT INFORMATION
  Report Type: Spontaneous
  Country: JP (occurrence: JP)
  Receive Date: 20250108
  Receipt Date: 20250502
  Transmission Date: 20250717
  Serious: Yes (Other)
  Sender: BOEHRINGER INGELHEIM
  Company Number: JP-NBI-2024-BI-059073

PATIENT
  Age: 83 Year
  Sex: Male

DRUGS (2)
  1. OFEV [Suspect]
     Active Substance: NINTEDANIB
     Indication: Interstitial lung disease
  2. OFEV [Suspect]
     Active Substance: NINTEDANIB

REACTIONS (21)
  - Cerebral haemorrhage [Not Recovered/Not Resolved]
  - Asphyxia [Not Recovered/Not Resolved]
  - Drug ineffective [Not Recovered/Not Resolved]
  - Pain [Not Recovered/Not Resolved]
  - Productive cough [Not Recovered/Not Resolved]
  - Cough [Not Recovered/Not Resolved]
  - Cough [Not Recovered/Not Resolved]
  - Diarrhoea [Recovered/Resolved]
  - Epistaxis [Not Recovered/Not Resolved]
  - Faeces soft [Not Recovered/Not Resolved]
  - Anal incontinence [Not Recovered/Not Resolved]
  - Haematochezia [Recovered/Resolved]
  - Cough [Not Recovered/Not Resolved]
  - Pruritus [Not Recovered/Not Resolved]
  - Amnesia [Not Recovered/Not Resolved]
  - Condition aggravated [Not Recovered/Not Resolved]
  - Physical deconditioning [Not Recovered/Not Resolved]
  - Sluggishness [Not Recovered/Not Resolved]
  - Hangnail [Not Recovered/Not Resolved]
  - Anal incontinence [Recovered/Resolved]
  - Diarrhoea [Not Recovered/Not Resolved]
